FAERS Safety Report 7117218-X (Version None)
Quarter: 2010Q4

REPORT INFORMATION
  Report Type: 
  Country: None (occurrence: None)
  Receive Date: 20101122
  Receipt Date: 20101109
  Transmission Date: 20110411
  Serious: Yes (Hospitalization)
  Sender: FDA-Public Use
  Company Number: US-MYLANLABS-2010S1020969

PATIENT
  Age: 79 Year
  Sex: Female

DRUGS (17)
  1. OSELTAMIVIR [Interacting]
     Indication: INFLUENZA
     Route: 065
  2. SOTALOL [Suspect]
     Indication: ATRIAL FIBRILLATION
     Route: 065
  3. SOTALOL [Interacting]
     Indication: HYPERTENSION
     Route: 065
  4. ASPIRIN [Concomitant]
     Route: 065
  5. WARFARIN [Concomitant]
     Route: 065
  6. LISINOPRIL [Concomitant]
     Route: 065
  7. FUROSEMIDE [Concomitant]
     Route: 065
  8. POTASSIUM CHLORIDE [Concomitant]
     Route: 065
  9. CALCIUM [Concomitant]
     Route: 065
  10. LECITHIN [Concomitant]
     Route: 065
  11. GLUCOSAMINE [Concomitant]
     Route: 065
  12. CEFTRIAXONE [Concomitant]
     Route: 065
  13. VANCOMYCIN [Concomitant]
     Route: 065
  14. CEFEPIME [Concomitant]
     Route: 065
  15. DOXYCYCLINE [Concomitant]
     Route: 065
  16. ONDANSETRON [Concomitant]
     Dosage: 7 DOSES OVER DAYS 2 TO 9
     Route: 042
  17. FAMOTIDINE [Concomitant]
     Route: 065

REACTIONS (2)
  - DRUG INTERACTION [None]
  - TORSADE DE POINTES [None]
